FAERS Safety Report 9226110 (Version 1)
Quarter: 2013Q1

REPORT INFORMATION
  Report Type: Spontaneous
  Country: US (occurrence: None)
  Receive Date: 20120921
  Receipt Date: 20120921
  Transmission Date: 20140127
  Serious: No
  Sender: FDA-Public Use
  Company Number: ZYD-12-AE-199

PATIENT
  Age: 30 Year
  Sex: Female

DRUGS (1)
  1. RIBAVIRIN [Suspect]
     Route: 048
     Dates: start: 20120708, end: 20120719

REACTIONS (1)
  - Abortion spontaneous [None]
